FAERS Safety Report 7749906-6 (Version None)
Quarter: 2011Q3

REPORT INFORMATION
  Report Type: 
  Country: None (occurrence: None)
  Receive Date: 20110914
  Receipt Date: 20110518
  Transmission Date: 20111222
  Serious: Yes (Hospitalization, Other)
  Sender: FDA-Public Use
  Company Number: NL-BAYER-201041693GPV

PATIENT
  Age: 52 Year
  Sex: Female
  Weight: 65 kg

DRUGS (20)
  1. UREA [Concomitant]
     Indication: PAIN OF SKIN
     Dosage: 1%
     Route: 061
     Dates: start: 20100809, end: 20100815
  2. ACETAMINOPHEN [Concomitant]
     Dosage: 1000 MG, TID
  3. SORAFENIB (RAF KINASE INHIBITOR) [Suspect]
     Dosage: 800 MG (DAILY DOSE)
     Dates: start: 20101006, end: 20101112
  4. LISINOPRIL [Concomitant]
     Indication: NON-SMALL CELL LUNG CANCER STAGE IV
     Route: 048
     Dates: start: 20100810, end: 20100816
  5. MOMETASONE FUROATE [Concomitant]
     Indication: RASH
     Route: 061
     Dates: start: 20100816
  6. ALBUTEROL [Concomitant]
     Dosage: 100 MCG DOSE AEROSOL 4-6 TIMES A DAY
  7. VENTOLIN HFA [Concomitant]
     Dosage: 100 MCG DOSE AEROSOL 4 TO 6 TIMES A DAY PRN
     Route: 055
  8. FENTANYL [Concomitant]
     Indication: OESOPHAGEAL PAIN
     Dosage: 12 ?G (DAILY DOSE), , TRANSDERMAL
     Route: 062
     Dates: start: 20100816, end: 20100819
  9. SORAFENIB (RAF KINASE INHIBITOR) [Suspect]
     Dosage: 400 MG (DAILY DOSE)
     Dates: start: 20100825, end: 20101005
  10. SERETIDE [Concomitant]
     Dosage: 25/250MCG BID + VOLUMATIC
  11. FENTANYL [Concomitant]
     Indication: PAIN OF SKIN
     Route: 062
     Dates: start: 20100901
  12. FLUCONAZOLE [Concomitant]
     Route: 048
     Dates: start: 20100915
  13. FENTANYL [Concomitant]
     Dosage: 50 MCG/HOUR
  14. SORAFENIB (RAF KINASE INHIBITOR) [Suspect]
     Indication: NON-SMALL CELL LUNG CANCER STAGE IV
     Dosage: 800 MG (DAILY DOSE)
     Route: 048
     Dates: start: 20100803, end: 20100816
  15. MAGNESIUM HYDROXIDE [Concomitant]
     Dosage: 724 MG, TID
  16. NEXIUM [Concomitant]
     Dosage: 400 MG, QD, SUSPENSION
  17. INSTANYL [Concomitant]
     Dosage: PRN 8 TIMES
  18. SUCRALFAT [Concomitant]
     Dosage: 1 G, TID
  19. LYRICA [Concomitant]
     Dosage: 75 MG, QD
  20. DOMPERIDON [Concomitant]
     Dosage: 20 MG, TID

REACTIONS (11)
  - BRONCHITIS BACTERIAL [None]
  - BACK PAIN [None]
  - HYPERTENSION [None]
  - TRACHEO-OESOPHAGEAL FISTULA [None]
  - OESOPHAGEAL PAIN [None]
  - PALMAR-PLANTAR ERYTHRODYSAESTHESIA SYNDROME [None]
  - RASH ERYTHEMATOUS [None]
  - HEADACHE [None]
  - DYSPHAGIA [None]
  - SKIN DISORDER [None]
  - CHRONIC OBSTRUCTIVE PULMONARY DISEASE [None]
